FAERS Safety Report 9614059 (Version 4)
Quarter: 2014Q1

REPORT INFORMATION
  Report Type: Report from Study
  Country: SE (occurrence: SE)
  Receive Date: 20131011
  Receipt Date: 20140129
  Transmission Date: 20141002
  Serious: Yes (Hospitalization)
  Sender: FDA-Public Use
  Company Number: SE-ROCHE-1282728

PATIENT
  Age: 76 Year
  Sex: Male
  Weight: 81.2 kg

DRUGS (12)
  1. VEMURAFENIB [Suspect]
     Indication: METASTATIC MALIGNANT MELANOMA
     Route: 048
     Dates: start: 20130917, end: 20130924
  2. VEMURAFENIB [Suspect]
     Route: 048
     Dates: start: 20131004
  3. LOSARTAN [Concomitant]
     Indication: HYPERTENSION
     Route: 048
     Dates: start: 2012
  4. HYDROKLORTIAZID [Concomitant]
     Indication: HYPERTENSION
     Route: 048
     Dates: start: 20130911, end: 20131023
  5. PARACETAMOL [Concomitant]
     Indication: TUMOUR PAIN
     Route: 048
     Dates: start: 20130801
  6. OXYCODON [Concomitant]
     Indication: ABDOMINAL PAIN UPPER
     Route: 048
     Dates: start: 20130930
  7. FUROSEMIDE [Concomitant]
     Indication: OEDEMA PERIPHERAL
     Route: 048
     Dates: start: 20131101
  8. FUROSEMIDE [Concomitant]
     Indication: NOCTURIA
  9. ZOPICLONE [Concomitant]
     Indication: INSOMNIA
     Route: 048
     Dates: start: 20131112
  10. LACTULOSE [Concomitant]
     Indication: CONSTIPATION
     Route: 048
     Dates: start: 20131003, end: 20131116
  11. PLACEBO [Suspect]
     Indication: MALIGNANT MELANOMA
     Route: 048
     Dates: start: 20130917, end: 20130924
  12. PLACEBO [Suspect]
     Route: 048
     Dates: start: 20131004

REACTIONS (1)
  - Cholecystitis [Recovered/Resolved]
